FAERS Safety Report 7423098-5 (Version None)
Quarter: 2011Q2

REPORT INFORMATION
  Report Type: 
  Country: None (occurrence: None)
  Receive Date: 20110419
  Receipt Date: 20110415
  Transmission Date: 20111010
  Serious: Yes (Death)
  Sender: FDA-Public Use
  Company Number: FR-SANOFI-AVENTIS-2011SA023077

PATIENT
  Age: 43 Year
  Sex: Female
  Weight: 58 kg

DRUGS (3)
  1. KALETRA [Concomitant]
     Indication: HIV INFECTION
     Route: 048
  2. INVIRASE [Concomitant]
     Indication: HIV INFECTION
     Route: 048
  3. TAXOTERE [Suspect]
     Indication: BREAST CANCER
     Route: 042
     Dates: start: 20101209, end: 20101209

REACTIONS (2)
  - NEUTROPENIA [None]
  - DRUG INTERACTION [None]
